FAERS Safety Report 17036603 (Version 1)
Quarter: 2019Q4

REPORT INFORMATION
  Report Type: Spontaneous
  Country: JP (occurrence: JP)
  Receive Date: 20191115
  Receipt Date: 20191115
  Transmission Date: 20200122
  Serious: Yes (Death)
  Sender: FDA-Public Use
  Company Number: JP-PFIZER INC-2019479626

PATIENT
  Age: 46 Year
  Sex: Male

DRUGS (2)
  1. MICAFUNGIN. [Suspect]
     Active Substance: MICAFUNGIN SODIUM
     Dosage: UNK
  2. VORICONAZOLE. [Suspect]
     Active Substance: VORICONAZOLE
     Dosage: UNK

REACTIONS (1)
  - Drug ineffective [Fatal]
